FAERS Safety Report 10100008 (Version 2)
Quarter: 2014Q2

REPORT INFORMATION
  Report Type: Spontaneous
  Country: US (occurrence: US)
  Receive Date: 20140423
  Receipt Date: 20140624
  Transmission Date: 20141212
  Serious: No
  Sender: FDA-Public Use
  Company Number: US-GILEAD-2014-0100337

PATIENT
  Age: 51 Year
  Sex: Female

DRUGS (3)
  1. SOVALDI [Suspect]
     Indication: HEPATITIS C
     Dosage: UNK
     Route: 065
     Dates: start: 201403
  2. RIBAVIRIN [Concomitant]
  3. INTERFERON [Concomitant]

REACTIONS (1)
  - Rash [Recovering/Resolving]
